FAERS Safety Report 9827026 (Version 2)
Quarter: 2014Q1

REPORT INFORMATION
  Report Type: Spontaneous
  Country: JP (occurrence: JP)
  Receive Date: 20140117
  Receipt Date: 20140127
  Transmission Date: 20141002
  Serious: Yes (Other)
  Sender: FDA-Public Use
  Company Number: JP-009507513-1401JPN007213

PATIENT
  Age: 42 Year
  Sex: Female

DRUGS (3)
  1. SINGULAIR TABLETS 10MG [Suspect]
     Indication: RHINITIS ALLERGIC
     Dosage: 10 MG, QD
     Route: 048
     Dates: start: 201210, end: 201301
  2. CLARITIN [Concomitant]
     Dosage: 10 MG, QD
     Route: 048
     Dates: start: 2012
  3. NASONEX [Concomitant]
     Dosage: 56 MICROGRAM, QD
     Route: 045
     Dates: start: 2012

REACTIONS (1)
  - Drug-induced liver injury [Unknown]
